FAERS Safety Report 25055303 (Version 1)
Quarter: 2025Q1

REPORT INFORMATION
  Report Type: Spontaneous
  Country: US (occurrence: US)
  Receive Date: 20250308
  Receipt Date: 20250308
  Transmission Date: 20250409
  Serious: Yes (Hospitalization)
  Sender: Unknown Manufacturer
  Company Number: US-KOANAAP-SML-US-2025-00144

PATIENT
  Age: 43 Year
  Sex: Male

DRUGS (2)
  1. CAPECITABINE [Suspect]
     Active Substance: CAPECITABINE
     Indication: Rectal adenocarcinoma
     Dosage: ORALLY TWICE A DAY FOR 14 DAYS ON AND 7 DAYS OFF EVERY 21?DAYS.
     Route: 048
  2. OXALIPLATIN [Suspect]
     Active Substance: OXALIPLATIN
     Indication: Rectal adenocarcinoma
     Route: 041

REACTIONS (13)
  - Toxicity to various agents [Unknown]
  - Diabetic ketoacidosis [Unknown]
  - Oral pain [Unknown]
  - Nausea [Unknown]
  - Vomiting [Unknown]
  - Diarrhoea [Unknown]
  - Abdominal pain [Unknown]
  - Dysphagia [Unknown]
  - Decreased appetite [Unknown]
  - Rash [Unknown]
  - Neutropenia [Unknown]
  - Thrombocytopenia [Unknown]
  - Asthenia [Unknown]
